FAERS Safety Report 16078399 (Version 1)
Quarter: 2019Q1

REPORT INFORMATION
  Report Type: Report from Study
  Country: PH (occurrence: PH)
  Receive Date: 20190315
  Receipt Date: 20190315
  Transmission Date: 20190418
  Serious: Yes (Life-Threatening, Hospitalization, Disabling, Other)
  Sender: FDA-Public Use
  Company Number: PH-PFIZER INC-2019111992

PATIENT
  Age: 59 Year
  Sex: Male

DRUGS (3)
  1. PLETAL [Suspect]
     Active Substance: CILOSTAZOL
     Dosage: 100 MG, UNK
     Dates: start: 201704
  2. LOSARTAN. [Suspect]
     Active Substance: LOSARTAN
     Dosage: 50 MG, UNK
  3. AMLODIPINE BESILATE [Suspect]
     Active Substance: AMLODIPINE BESYLATE
     Dosage: 50 MG, UNK

REACTIONS (2)
  - Coma [Unknown]
  - Dizziness [Unknown]

NARRATIVE: CASE EVENT DATE: 20190209
